FAERS Safety Report 17674625 (Version 1)
Quarter: 2020Q2

REPORT INFORMATION
  Report Type: Spontaneous
  Country: CA (occurrence: CA)
  Receive Date: 20200416
  Receipt Date: 20200416
  Transmission Date: 20200714
  Serious: Yes (Life-Threatening, Other)
  Sender: FDA-Public Use
  Company Number: CA-ELI_LILLY_AND_COMPANY-CA202004004244

PATIENT
  Age: 51 Year
  Sex: Male
  Weight: 70 kg

DRUGS (2)
  1. HUMALOG [Suspect]
     Active Substance: INSULIN LISPRO
     Indication: TYPE 1 DIABETES MELLITUS
     Dosage: 1.0 DOSAGE FORM, TID
     Route: 058
  2. TRESIBA [Suspect]
     Active Substance: INSULIN DEGLUDEC
     Indication: TYPE 1 DIABETES MELLITUS
     Dosage: UNK UNK, UNKNOWN
     Route: 065

REACTIONS (11)
  - Blood glucose increased [Unknown]
  - Vomiting [Unknown]
  - Hypoglycaemia [Unknown]
  - Neuralgia [Unknown]
  - Hyperglycaemia [Unknown]
  - Nausea [Unknown]
  - Blood glucose fluctuation [Unknown]
  - Constipation [Unknown]
  - Abdominal pain [Unknown]
  - Decreased appetite [Unknown]
  - General physical health deterioration [Unknown]
